FAERS Safety Report 10454862 (Version 3)
Quarter: 2015Q3

REPORT INFORMATION
  Report Type: Spontaneous
  Country: US (occurrence: US)
  Receive Date: 20140915
  Receipt Date: 20150914
  Transmission Date: 20151125
  Serious: No
  Sender: FDA-Public Use
  Company Number: US-ASTELLAS-2014US010401

PATIENT
  Sex: Male

DRUGS (3)
  1. XTANDI [Suspect]
     Active Substance: ENZALUTAMIDE
     Route: 048
  2. XTANDI [Suspect]
     Active Substance: ENZALUTAMIDE
     Indication: PROSTATE CANCER
     Route: 048
     Dates: start: 20140726
  3. XTANDI [Suspect]
     Active Substance: ENZALUTAMIDE
     Route: 048

REACTIONS (8)
  - Head discomfort [Unknown]
  - Lacrimation increased [Unknown]
  - Abasia [Unknown]
  - Pain in extremity [Unknown]
  - Abdominal discomfort [Unknown]
  - Loss of consciousness [Unknown]
  - Underdose [Unknown]
  - Eye disorder [Unknown]
